FAERS Safety Report 13775759 (Version 1)
Quarter: 2017Q3

REPORT INFORMATION
  Report Type: Spontaneous
  Country: ES (occurrence: ES)
  Receive Date: 20170721
  Receipt Date: 20170721
  Transmission Date: 20171127
  Serious: Yes (Death)
  Sender: FDA-Public Use
  Company Number: ES-ACTELION-A-CH2017-156605

PATIENT
  Age: 53 Year
  Sex: Female

DRUGS (1)
  1. OPSUMIT [Suspect]
     Active Substance: MACITENTAN
     Indication: PULMONARY ARTERIAL HYPERTENSION
     Dosage: UNK
     Route: 048
     Dates: start: 20140602

REACTIONS (5)
  - Pulmonary arterial hypertension [Fatal]
  - Hepatocellular carcinoma [Fatal]
  - Disease progression [Fatal]
  - Autoimmune hepatitis [Fatal]
  - Hepatic cirrhosis [Fatal]
